FAERS Safety Report 5618818-6 (Version None)
Quarter: 2008Q1

REPORT INFORMATION
  Report Type: 
  Country: None (occurrence: None)
  Receive Date: 20080207
  Receipt Date: 20080206
  Transmission Date: 20080703
  Serious: Yes (Death, Hospitalization, Other)
  Sender: FDA-Public Use
  Company Number: CZ-PFIZER INC-2008008039

PATIENT
  Age: 50 Year
  Sex: Female

DRUGS (6)
  1. ZELDOX (CAPSULES) [Suspect]
     Indication: SCHIZOPHRENIA, PARANOID TYPE
     Route: 048
  2. ALCOHOL [Suspect]
  3. CHLORPROTHIXENE [Concomitant]
     Dosage: DAILY DOSE:50MG
     Route: 048
  4. SERTRALINE [Concomitant]
     Route: 048
  5. CLONAZEPAM [Concomitant]
     Dosage: DAILY DOSE:2MG
     Route: 048
  6. ABILIFY [Concomitant]

REACTIONS (3)
  - INTENTIONAL OVERDOSE [None]
  - SCHIZOPHRENIA [None]
  - SUDDEN DEATH [None]
